FAERS Safety Report 25278574 (Version 1)
Quarter: 2025Q2

REPORT INFORMATION
  Report Type: Spontaneous
  Country: CN (occurrence: CN)
  Receive Date: 20250507
  Receipt Date: 20250507
  Transmission Date: 20250716
  Serious: Yes (Hospitalization)
  Sender: PFIZER
  Company Number: CN-PFIZER INC-PV202500052796

PATIENT
  Age: 85 Year
  Sex: Male
  Weight: 50 kg

DRUGS (2)
  1. TYGACIL [Suspect]
     Active Substance: TIGECYCLINE
     Indication: Anti-infective therapy
     Dosage: 50 MG, 2X/DAY
     Route: 042
     Dates: start: 20250409, end: 20250414
  2. SODIUM CHLORIDE [Concomitant]
     Active Substance: SODIUM CHLORIDE
     Indication: Vehicle solution use
     Dosage: 50 ML, 2X/DAY
     Route: 042
     Dates: start: 20250409, end: 20250414

REACTIONS (3)
  - Haemoglobin decreased [Recovering/Resolving]
  - Blood bilirubin increased [Recovering/Resolving]
  - Transaminases increased [Recovering/Resolving]

NARRATIVE: CASE EVENT DATE: 20250414
